FAERS Safety Report 18546597 (Version 1)
Quarter: 2020Q4

REPORT INFORMATION
  Report Type: Spontaneous
  Country: JP (occurrence: JP)
  Receive Date: 20201125
  Receipt Date: 20201125
  Transmission Date: 20210114
  Serious: Yes (Death, Other)
  Sender: FDA-Public Use
  Company Number: JP-JNJFOC-20201116347

PATIENT

DRUGS (1)
  1. XARELTO [Suspect]
     Active Substance: RIVAROXABAN
     Indication: ATRIAL FIBRILLATION
     Route: 048

REACTIONS (11)
  - Pneumonia [Fatal]
  - Haematuria [Unknown]
  - Anaemia [Unknown]
  - Cardiac disorder [Fatal]
  - Neoplasm malignant [Fatal]
  - Death [Fatal]
  - Gastrointestinal haemorrhage [Fatal]
  - Renal failure [Fatal]
  - Haemorrhage subcutaneous [Unknown]
  - Epistaxis [Unknown]
  - Haemorrhoids [Unknown]
